FAERS Safety Report 24984061 (Version 1)
Quarter: 2025Q1

REPORT INFORMATION
  Report Type: Spontaneous
  Country: JP (occurrence: JP)
  Receive Date: 20250219
  Receipt Date: 20250219
  Transmission Date: 20250409
  Serious: Yes (Other)
  Sender: GENMAB
  Company Number: JP-GENMAB-2024-04444

PATIENT
  Age: 7 Decade

DRUGS (10)
  1. EPKINLY [Suspect]
     Active Substance: EPCORITAMAB-BYSP
     Indication: Diffuse large B-cell lymphoma refractory
     Route: 058
     Dates: start: 20241112, end: 20241112
  2. EPKINLY [Suspect]
     Active Substance: EPCORITAMAB-BYSP
     Route: 058
     Dates: start: 20241119, end: 20241119
  3. EPKINLY [Suspect]
     Active Substance: EPCORITAMAB-BYSP
     Route: 058
     Dates: start: 20241126
  4. ETOPOSIDE [Concomitant]
     Active Substance: ETOPOSIDE
     Dates: start: 2024, end: 20241112
  5. CYTARABINE [Concomitant]
     Active Substance: CYTARABINE
     Dates: start: 2024, end: 20241112
  6. CISPLATIN [Concomitant]
     Active Substance: CISPLATIN
     Dates: start: 2024, end: 20241112
  7. METHYLPREDNISOLONE [Concomitant]
     Active Substance: METHYLPREDNISOLONE
     Dates: start: 2024, end: 20241112
  8. DEXAMETHASONE [Concomitant]
     Active Substance: DEXAMETHASONE
     Indication: Prophylaxis
     Dates: start: 20241112, end: 20241207
  9. ANTIHISTAMINES NOS [Concomitant]
     Active Substance: ANTIHISTAMINES NOS
     Indication: Prophylaxis
     Dates: start: 20241112, end: 20241204
  10. UNSPECIFIED INGREDIENT [Concomitant]
     Active Substance: UNSPECIFIED INGREDIENT
     Indication: Prophylaxis
     Dates: start: 20241112, end: 20241204

REACTIONS (5)
  - Diffuse large B-cell lymphoma refractory [Unknown]
  - Cytokine release syndrome [Recovering/Resolving]
  - Blood lactate dehydrogenase increased [Unknown]
  - Pleural effusion [Unknown]
  - Pyrexia [Unknown]

NARRATIVE: CASE EVENT DATE: 20240101
